FAERS Safety Report 23462314 (Version 1)
Quarter: 2024Q1

REPORT INFORMATION
  Report Type: Spontaneous
  Country: US (occurrence: None)
  Receive Date: 20240130
  Receipt Date: 20240130
  Transmission Date: 20240410
  Serious: Yes (Hospitalization)
  Sender: FDA-Public Use
  Company Number: None

PATIENT
  Age: 49 Year
  Sex: Male
  Weight: 81.65 kg

DRUGS (1)
  1. VALIUM [Suspect]
     Active Substance: DIAZEPAM
     Indication: Tendonitis
     Route: 048
     Dates: end: 20210501

REACTIONS (3)
  - Headache [None]
  - Drug hypersensitivity [None]
  - Tinnitus [None]

NARRATIVE: CASE EVENT DATE: 20190301
